FAERS Safety Report 5191016-9 (Version None)
Quarter: 2006Q4

REPORT INFORMATION
  Report Type: 
  Country: None (occurrence: None)
  Receive Date: 20061218
  Receipt Date: 20061204
  Transmission Date: 20070319
  Serious: Yes (Hospitalization)
  Sender: FDA-Public Use
  Company Number: RENA-12026

PATIENT
  Age: 79 Year
  Sex: Male

DRUGS (22)
  1. PHOSBLOCK 250 MG TABLETS [Suspect]
     Indication: HYPERPHOSPHATAEMIA
     Dosage: 2.25 G QD PO
     Route: 048
     Dates: start: 20060701
  2. PHOSBLOCK 250 MG TABLETS [Suspect]
     Indication: HYPERPHOSPHATAEMIA
     Dosage: 3.75 G QD PO
     Route: 048
     Dates: start: 20060601, end: 20060701
  3. PHOSBLOCK 250 MG TABLETS [Suspect]
     Indication: HYPERPHOSPHATAEMIA
     Dosage: 4.5 G QD PO
     Route: 048
     Dates: start: 20050601, end: 20060601
  4. CALCIUM POLYSTYRENE SULFONATE [Concomitant]
  5. PIROXICAM [Concomitant]
  6. SOFALCONE [Concomitant]
  7. ALFACALCIDOL [Concomitant]
  8. ANEZINIUM METILSULFATE [Concomitant]
  9. RANITIDINE HYDROCHLORIDE [Concomitant]
  10. MIDODRINE HYDROCHLORIDE [Concomitant]
  11. MELOXICAM [Concomitant]
  12. LOMEFLOXACIN HYDROCHLORIDE [Concomitant]
  13. SERRAPEPTASE [Concomitant]
  14. RESISTANT LACTIC ACID BACTERIAE COMBINED DRUG [Concomitant]
  15. PRECIPITATED CALCIUM CARBONATE [Concomitant]
  16. MOSAPRIDE CITRATE [Concomitant]
  17. REBAMIPIDE [Concomitant]
  18. NON-PYRINE PREPARATION OF COLD SYNDROME [Concomitant]
  19. BETAMETHASONE / D-CHLORPHENIRAMINE MALEATE [Concomitant]
  20. VALSARTAN [Concomitant]
  21. CALCIUM POLYSTYRENE SULFONATE [Concomitant]
  22. SULUTAMICILLIN TOSILATE [Concomitant]

REACTIONS (10)
  - ACUTE ABDOMEN [None]
  - ANOREXIA [None]
  - CHEST PAIN [None]
  - CHILLS [None]
  - DIALYSIS [None]
  - DIARRHOEA [None]
  - LARGE INTESTINE PERFORATION [None]
  - MALAISE [None]
  - NAUSEA [None]
  - PERITONITIS [None]
